FAERS Safety Report 4302656-0 (Version None)
Quarter: 2004Q1

REPORT INFORMATION
  Report Type: 
  Country: None (occurrence: None)
  Receive Date: 20040223
  Receipt Date: 20040223
  Transmission Date: 20041129
  Serious: Yes (Life-Threatening, Hospitalization)
  Sender: FDA-Public Use
  Company Number: None

PATIENT
  Age: 50 Year
  Sex: Female
  Weight: 78.6 kg

DRUGS (2)
  1. TORADOL [Suspect]
     Indication: ARTHRALGIA
     Dosage: 30 MG IV Q6HOURS
     Dates: start: 20030520, end: 20030521
  2. TORADOL [Suspect]
     Indication: ARTHRITIS
     Dosage: 30 MG IV Q6HOURS
     Dates: start: 20030520, end: 20030521

REACTIONS (4)
  - ACUTE RESPIRATORY FAILURE [None]
  - ASTHMA [None]
  - CARDIO-RESPIRATORY ARREST [None]
  - HYPERSENSITIVITY [None]
